FAERS Safety Report 9028001 (Version 1)
Quarter: 2013Q1

REPORT INFORMATION
  Report Type: Spontaneous
  Country: US (occurrence: None)
  Receive Date: 20130114
  Receipt Date: 20130114
  Transmission Date: 20140127
  Serious: Yes (Other)
  Sender: FDA-Public Use
  Company Number: None

PATIENT
  Age: 78 Year
  Sex: Female
  Weight: 68.04 kg

DRUGS (1)
  1. PRADAXA - 150 MG [Suspect]
     Indication: ANTICOAGULANT THERAPY
     Dates: start: 20101206, end: 20101225

REACTIONS (4)
  - Dyspnoea [None]
  - Epistaxis [None]
  - Rectal haemorrhage [None]
  - Vaginal haemorrhage [None]
